FAERS Safety Report 9342870 (Version 2)
Quarter: 2013Q3

REPORT INFORMATION
  Report Type: Spontaneous
  Country: US (occurrence: US)
  Receive Date: 20130611
  Receipt Date: 20130802
  Transmission Date: 20140515
  Serious: No
  Sender: FDA-Public Use
  Company Number: US-JNJFOC-20130600206

PATIENT
  Sex: Female
  Weight: 65.77 kg

DRUGS (4)
  1. INVEGA SUSTENNA [Suspect]
     Indication: BIPOLAR DISORDER
     Route: 030
     Dates: start: 20130311, end: 20130506
  2. TOPAMAX [Concomitant]
     Indication: PRODUCT USED FOR UNKNOWN INDICATION
     Route: 048
     Dates: start: 2007
  3. CYMBALTA [Concomitant]
     Indication: PRODUCT USED FOR UNKNOWN INDICATION
     Dosage: FROM APPROXIMATELY 4 YEARS
     Route: 065
  4. LITHIUM [Concomitant]
     Indication: PRODUCT USED FOR UNKNOWN INDICATION
     Dosage: FROM APPROXIMATELY 4 YEARS
     Route: 065
     Dates: start: 201209

REACTIONS (9)
  - Adverse drug reaction [Unknown]
  - Refusal of treatment by patient [Unknown]
  - Drug dose omission [Unknown]
  - Affect lability [Unknown]
  - Mood swings [Unknown]
  - VIIth nerve paralysis [Unknown]
  - Speech disorder [Unknown]
  - Weight increased [Unknown]
  - Off label use [Unknown]
